FAERS Safety Report 5308088-0 (Version None)
Quarter: 2007Q2

REPORT INFORMATION
  Report Type: 
  Country: None (occurrence: None)
  Receive Date: 20070426
  Receipt Date: 20070416
  Transmission Date: 20071010
  Serious: Yes (Other)
  Sender: FDA-Public Use
  Company Number: PHEH2007US05805

PATIENT
  Sex: Female

DRUGS (3)
  1. LIPITOR [Concomitant]
     Dosage: 20 MG, UNK
  2. ZELNORM [Suspect]
     Dosage: 6 MG, QD
     Route: 048
     Dates: start: 20040501
  3. ZELNORM [Suspect]
     Dosage: 6 MG, BID
     Route: 048
     Dates: end: 20070415

REACTIONS (5)
  - BLOOD CHOLESTEROL INCREASED [None]
  - CONSTIPATION [None]
  - DIZZINESS [None]
  - DYSPNOEA [None]
  - RECTAL HAEMORRHAGE [None]
